FAERS Safety Report 10050831 (Version 1)
Quarter: 2014Q2

REPORT INFORMATION
  Report Type: Spontaneous
  Country: US (occurrence: US)
  Receive Date: 20140401
  Receipt Date: 20140401
  Transmission Date: 20141212
  Serious: No
  Sender: FDA-Public Use
  Company Number: US-ASTRAZENECA-2014SE05871

PATIENT
  Age: 79 Year
  Sex: Female
  Weight: 77.1 kg

DRUGS (5)
  1. NEXIUM [Suspect]
     Indication: GASTROOESOPHAGEAL REFLUX DISEASE
     Route: 048
     Dates: start: 2007
  2. SYNTHROID [Concomitant]
     Indication: THYROID DISORDER
     Dosage: 112 MCG DAILY GENERIC
     Route: 048
  3. TYLENOL [Concomitant]
     Indication: PAIN
     Dosage: UNKNOWN PRN
     Route: 048
  4. CENTRUM SILVER [Concomitant]
     Indication: MULTI-VITAMIN DEFICIENCY
     Dosage: UNKNOWN DAILY
     Route: 048
  5. SIMVASTATIN [Concomitant]
     Route: 048

REACTIONS (3)
  - Blood cholesterol increased [Unknown]
  - Pain in extremity [Recovered/Resolved]
  - Sleep disorder due to general medical condition, insomnia type [Recovered/Resolved]
